FAERS Safety Report 4271990-5 (Version None)
Quarter: 2004Q1

REPORT INFORMATION
  Report Type: 
  Country: None (occurrence: None)
  Receive Date: 20040115
  Receipt Date: 20010906
  Transmission Date: 20041129
  Serious: Yes (Hospitalization)
  Sender: FDA-Public Use
  Company Number: 10980407

PATIENT
  Age: 48 Year
  Sex: Male

DRUGS (5)
  1. PRAVASTATIN SODIUM [Suspect]
     Dosage: MOST RECENT DOSE PRIOR TO EVENT WAS 29-AUG-2001.
     Route: 048
     Dates: start: 20010817
  2. ATENOLOL [Suspect]
     Route: 048
     Dates: start: 20010816, end: 20010831
  3. ISOSORBIDE [Concomitant]
     Route: 048
     Dates: start: 20010817
  4. NORVASC [Concomitant]
     Route: 048
     Dates: start: 20010817
  5. ZESTRIL [Concomitant]
     Dates: start: 20010817

REACTIONS (2)
  - CHEST PAIN [None]
  - WHEEZING [None]
